FAERS Safety Report 4300365-5 (Version None)
Quarter: 2004Q1

REPORT INFORMATION
  Report Type: 
  Country: None (occurrence: None)
  Receive Date: 20040220
  Receipt Date: 20040218
  Transmission Date: 20041129
  Serious: Yes (Hospitalization)
  Sender: FDA-Public Use
  Company Number: US-GLAXOSMITHKLINE-A0498759A

PATIENT
  Sex: Male

DRUGS (9)
  1. HYCAMTIN [Suspect]
     Dosage: 40MG SINGLE DOSE
     Route: 042
     Dates: start: 20040211
  2. EPO [Concomitant]
  3. IRON [Concomitant]
  4. FOLIC ACID [Concomitant]
  5. FLUOXETINE [Concomitant]
  6. VICODIN [Concomitant]
  7. HYDROXYZINE [Concomitant]
  8. SYNTHROID [Concomitant]
  9. RANITIDINE [Concomitant]

REACTIONS (4)
  - MEDICATION ERROR [None]
  - MUCOSAL INFLAMMATION [None]
  - OVERDOSE [None]
  - PANCYTOPENIA [None]
